FAERS Safety Report 4769711-2 (Version None)
Quarter: 2005Q3

REPORT INFORMATION
  Report Type: 
  Country: None (occurrence: None)
  Receive Date: 20050915
  Receipt Date: 20050307
  Transmission Date: 20060218
  Serious: No
  Sender: FDA-Public Use
  Company Number: US-GLAXOSMITHKLINE-A0548541A

PATIENT
  Age: 57 Year
  Sex: Female

DRUGS (2)
  1. ABREVA [Suspect]
  2. FAMVIR [Concomitant]

REACTIONS (2)
  - HEADACHE [None]
  - HERPES SIMPLEX [None]
